FAERS Safety Report 6210129-3 (Version None)
Quarter: 2009Q2

REPORT INFORMATION
  Report Type: 
  Country: None (occurrence: None)
  Receive Date: 20090527
  Receipt Date: 20090513
  Transmission Date: 20091009
  Serious: Yes (Other)
  Sender: FDA-Public Use
  Company Number: 1000006421

PATIENT
  Age: 20 Year
  Sex: Female

DRUGS (1)
  1. FOSFOMYCIN (FOSFOMYCIN TROMETAMOL) (GRANULATE) [Suspect]
     Indication: CYSTITIS
     Dosage: 3 GM (3 GM, ONCE), ORAL
     Route: 048
     Dates: start: 20090508, end: 20090508

REACTIONS (10)
  - ABDOMINAL PAIN UPPER [None]
  - DYSPNOEA [None]
  - FACE OEDEMA [None]
  - FATIGUE [None]
  - LIP SWELLING [None]
  - NAUSEA [None]
  - PARAESTHESIA [None]
  - SWELLING FACE [None]
  - URTICARIA [None]
  - VERTIGO [None]
